FAERS Safety Report 15441017 (Version 1)
Quarter: 2018Q3

REPORT INFORMATION
  Report Type: Spontaneous
  Country: FR (occurrence: FR)
  Receive Date: 20180928
  Receipt Date: 20180928
  Transmission Date: 20181010
  Serious: Yes (Death, Other)
  Sender: FDA-Public Use
  Company Number: FR-009507513-1809FRA013417

PATIENT
  Age: 83 Year
  Sex: Female

DRUGS (1)
  1. FIDAXOMICIN [Suspect]
     Active Substance: FIDAXOMICIN
     Indication: CLOSTRIDIUM DIFFICILE INFECTION
     Dosage: 1 DF, TWICE DAILY (MORNING AND EVENING)
     Route: 048
     Dates: start: 20180913

REACTIONS (4)
  - Neoplasm progression [Fatal]
  - Renal failure [Fatal]
  - Wrong technique in product usage process [Unknown]
  - General physical health deterioration [Fatal]

NARRATIVE: CASE EVENT DATE: 20180913
